FAERS Safety Report 5369076-1 (Version None)
Quarter: 2007Q2

REPORT INFORMATION
  Report Type: 
  Country: None (occurrence: None)
  Receive Date: 20070625
  Receipt Date: 20070619
  Transmission Date: 20071010
  Serious: Yes (Hospitalization)
  Sender: FDA-Public Use
  Company Number: BR-BRISTOL-MYERS SQUIBB COMPANY-13816335

PATIENT
  Age: 14 Month
  Sex: Male

DRUGS (9)
  1. AMOXICILLIN [Suspect]
     Indication: EAR INFECTION
  2. AMOXICILLIN [Suspect]
     Indication: PYREXIA
  3. AMIKACIN SULFATE [Suspect]
     Indication: SEPSIS
  4. AMOXICILLIN + CLAVULANATE POTASSIUM [Suspect]
     Indication: EAR INFECTION
  5. AMOXICILLIN + CLAVULANATE POTASSIUM [Suspect]
     Indication: PYREXIA
  6. PHENOBARBITAL TAB [Suspect]
     Indication: CONVULSION
  7. MIDAZOLAM HCL [Suspect]
     Indication: CONVULSION
  8. PHENYLHYDANTOIN [Suspect]
     Indication: CONVULSION
  9. CIPROFLOXACIN HCL [Suspect]
     Indication: SEPSIS

REACTIONS (5)
  - CONVULSION [None]
  - HYPOTENSION [None]
  - SEPSIS [None]
  - TOXIC EPIDERMAL NECROLYSIS [None]
  - VOMITING [None]
